FAERS Safety Report 6885270-2 (Version None)
Quarter: 2010Q3

REPORT INFORMATION
  Report Type: 
  Country: None (occurrence: None)
  Receive Date: 20100729
  Receipt Date: 20100729
  Transmission Date: 20110219
  Serious: Yes (Life-Threatening)
  Sender: FDA-Public Use
  Company Number: None

PATIENT
  Age: 37 Year
  Sex: Female
  Weight: 72.5755 kg

DRUGS (2)
  1. YAZ [Suspect]
     Indication: CONTRACEPTION
     Dosage: 1 TAB DAILY AT THE SAME PO
     Route: 048
     Dates: start: 20070701, end: 20100510
  2. YASMIN [Suspect]
     Dosage: 1 TAB DAILY AT THE SAME PO
     Route: 048

REACTIONS (1)
  - DEEP VEIN THROMBOSIS [None]
